FAERS Safety Report 7990696-X (Version None)
Quarter: 2011Q4

REPORT INFORMATION
  Report Type: 
  Country: None (occurrence: None)
  Receive Date: 20111219
  Receipt Date: 20111213
  Transmission Date: 20120403
  Serious: Yes (Hospitalization)
  Sender: FDA-Public Use
  Company Number: JP-PFIZER INC-2011296817

PATIENT
  Age: 65 Year
  Sex: Male
  Weight: 69 kg

DRUGS (14)
  1. ETODOLAC [Concomitant]
     Dosage: UNK
     Route: 048
  2. CLARITHROMYCIN [Concomitant]
     Dosage: UNK
     Route: 048
  3. TAMSULOSIN HCL [Concomitant]
     Route: 048
  4. INSULIN HUMAN [Concomitant]
     Route: 058
  5. NIZATIDINE [Concomitant]
     Dosage: UNK
     Route: 048
  6. MUCODYNE [Concomitant]
     Route: 048
  7. FLUVOXAMINE MALEATE [Concomitant]
     Route: 048
  8. DEPAS [Concomitant]
     Route: 048
  9. SUNITINIB MALATE [Suspect]
     Dosage: 25 MG, 1X/DAY
     Dates: start: 20101006, end: 20101021
  10. SUNITINIB MALATE [Suspect]
     Indication: GASTROINTESTINAL STROMAL TUMOUR
     Dosage: 50 MG, 1X/DAY
     Route: 048
     Dates: start: 20091013, end: 20091026
  11. PRORENAL [Concomitant]
     Route: 048
  12. NEUROTROPIN [Concomitant]
     Dosage: UNK
     Route: 048
  13. LENDORMIN [Concomitant]
     Route: 048
  14. DOGMATYL [Concomitant]
     Route: 048

REACTIONS (3)
  - NEUTROPHIL COUNT DECREASED [None]
  - PLATELET COUNT DECREASED [None]
  - PNEUMONIA [None]
